FAERS Safety Report 12134492 (Version 1)
Quarter: 2016Q1

REPORT INFORMATION
  Report Type: Spontaneous
  Country: CN (occurrence: CN)
  Receive Date: 20160301
  Receipt Date: 20160301
  Transmission Date: 20160526
  Serious: Yes (Other)
  Sender: FDA-Public Use
  Company Number: CN-ASTRAZENECA-2016SE21415

PATIENT
  Sex: Male
  Weight: 83 kg

DRUGS (3)
  1. CEFOPERAZONE SODIUM AND SULBACTAM SODIUM [Suspect]
     Active Substance: CEFOPERAZONE SODIUM\SULBACTAM SODIUM
     Indication: INFLAMMATION
     Route: 041
     Dates: start: 20150903, end: 20150906
  2. OMEPRAZOLE MAGNESIUM. [Suspect]
     Active Substance: OMEPRAZOLE MAGNESIUM
     Indication: DRUG THERAPY
     Route: 048
     Dates: start: 20150905
  3. ACARBOSE. [Suspect]
     Active Substance: ACARBOSE
     Indication: DRUG THERAPY
     Route: 048
     Dates: start: 20150830

REACTIONS (5)
  - Alanine aminotransferase increased [Unknown]
  - Aspartate aminotransferase increased [Unknown]
  - Blood bilirubin increased [Unknown]
  - Liver function test abnormal [Recovering/Resolving]
  - Bilirubin conjugated increased [Unknown]
